FAERS Safety Report 7944771-6 (Version None)
Quarter: 2011Q4

REPORT INFORMATION
  Report Type: 
  Country: None (occurrence: None)
  Receive Date: 20111129
  Receipt Date: 20111124
  Transmission Date: 20120403
  Serious: Yes (Death, Life-Threatening, Hospitalization)
  Sender: FDA-Public Use
  Company Number: JP-PFIZER INC-2011211328

PATIENT
  Age: 59 Year
  Sex: Male
  Weight: 49 kg

DRUGS (10)
  1. DICLOFENAC SODIUM [Concomitant]
     Dosage: 25 MG, AS NEEDED
     Route: 048
  2. TEMSIROLIMUS [Suspect]
     Indication: RENAL CELL CARCINOMA
     Dosage: 25 MG, WEEKLY
     Route: 042
     Dates: start: 20110706, end: 20110713
  3. TEMSIROLIMUS [Suspect]
     Dosage: 25 MG, WEEKLY
     Route: 042
     Dates: start: 20110719
  4. MENATETRENONE [Concomitant]
     Dosage: 15 MG/DAY
     Route: 048
     Dates: end: 20110809
  5. NAPROXEN [Concomitant]
     Indication: PYREXIA
     Dosage: 100 MG/DAY
     Route: 048
  6. ANYRUME S [Concomitant]
     Dosage: 500 MG, AS NEEDED
     Route: 048
  7. CANDESARTAN CILEXETIL [Concomitant]
     Dosage: 4 MG, 1X/DAY
     Route: 048
  8. FOSAMAX [Concomitant]
     Dosage: 35 MG, WEEKLY
     Route: 048
     Dates: end: 20110809
  9. ALLEGRA [Concomitant]
     Indication: PROPHYLAXIS
     Dosage: 60 MG, 1X/DAY
     Route: 048
  10. CELOOP [Concomitant]
     Dosage: 50 MG/DAY
     Route: 048

REACTIONS (7)
  - PNEUMONIA BACTERIAL [None]
  - DISEASE PROGRESSION [None]
  - RENAL CELL CARCINOMA [None]
  - SHUNT INFECTION [None]
  - SEPSIS [None]
  - DEEP VEIN THROMBOSIS [None]
  - PYREXIA [None]
